FAERS Safety Report 17014855 (Version 1)
Quarter: 2019Q4

REPORT INFORMATION
  Report Type: Spontaneous
  Country: US (occurrence: US)
  Receive Date: 20191108
  Receipt Date: 20191108
  Transmission Date: 20200122
  Serious: No
  Sender: FDA-Public Use
  Company Number: None

PATIENT
  Age: 76 Year
  Sex: Female
  Weight: 77.85 kg

DRUGS (2)
  1. DUREZOL [Suspect]
     Active Substance: DIFLUPREDNATE
     Indication: TOXIC ANTERIOR SEGMENT SYNDROME
     Route: 061
     Dates: start: 20190925, end: 20190927
  2. DUREZOL [Concomitant]
     Active Substance: DIFLUPREDNATE
     Dates: start: 20190925, end: 20190927

REACTIONS (2)
  - Post procedural complication [None]
  - Toxic anterior segment syndrome [None]

NARRATIVE: CASE EVENT DATE: 20190924
